FAERS Safety Report 23666177 (Version 1)
Quarter: 2024Q1

REPORT INFORMATION
  Report Type: Spontaneous
  Country: FR (occurrence: FR)
  Receive Date: 20240324
  Receipt Date: 20240324
  Transmission Date: 20240410
  Serious: Yes (Other)
  Sender: FDA-Public Use
  Company Number: FR-STRIDES ARCOLAB LIMITED-2024SP003266

PATIENT
  Age: 34 Year
  Sex: Male

DRUGS (4)
  1. PREDNISOLONE [Suspect]
     Active Substance: PREDNISOLONE
     Indication: Disseminated tuberculosis
     Dosage: 100 MILLIGRAM, PER DAY
     Route: 065
  2. CERTOLIZUMAB [Suspect]
     Active Substance: CERTOLIZUMAB
     Indication: Ankylosing spondylitis
     Dosage: UNK, EVERY 2 WEEKS
     Route: 065
  3. ISONIAZID\PYRAZINAMIDE\RIFAMPIN [Suspect]
     Active Substance: ISONIAZID\PYRAZINAMIDE\RIFAMPIN
     Indication: Disseminated tuberculosis
     Dosage: 6 DOSAGE FORM (6 PILLS)
     Route: 065
  4. ETHAMBUTOL [Suspect]
     Active Substance: ETHAMBUTOL HYDROCHLORIDE
     Indication: Disseminated tuberculosis
     Dosage: 500 MILLIGRAM, 2 PILLS
     Route: 065

REACTIONS (2)
  - Drug ineffective [Unknown]
  - Immune reconstitution inflammatory syndrome associated tuberculosis [Recovered/Resolved]
